FAERS Safety Report 6206333-0 (Version None)
Quarter: 2009Q2

REPORT INFORMATION
  Report Type: 
  Country: None (occurrence: None)
  Receive Date: 20090528
  Receipt Date: 20090517
  Transmission Date: 20091009
  Serious: Yes (Other)
  Sender: FDA-Public Use
  Company Number: PHHY2009EG18885

PATIENT
  Age: 32 Year
  Sex: Male

DRUGS (3)
  1. HYPOTEARS (NVO) [Suspect]
     Indication: DRY EYE
     Dosage: TWICE
  2. HYPOTEARS (NVO) [Suspect]
     Indication: KERATITIS HERPETIC
  3. ANTIALLERGIC AGENTS [Concomitant]

REACTIONS (3)
  - EYE PRURITUS [None]
  - LACRIMATION INCREASED [None]
  - OCULAR HYPERAEMIA [None]
